FAERS Safety Report 20830995 (Version 1)
Quarter: 2022Q2

REPORT INFORMATION
  Report Type: Spontaneous
  Country: US (occurrence: US)
  Receive Date: 20220515
  Receipt Date: 20220515
  Transmission Date: 20220721
  Serious: No
  Sender: FDA-Public Use
  Company Number: US-BRISTOL-MYERS SQUIBB COMPANY-2022-021136

PATIENT
  Age: 62 Year
  Sex: Female

DRUGS (2)
  1. ORENCIA [Suspect]
     Active Substance: ABATACEPT
     Indication: Product used for unknown indication
     Dosage: DOSE : UNAVAILABLE;     FREQ : INJECT 125MG (1 SYRINGE) SUBCUTANEOUSLY ONCE A WEEK.
     Route: 058
  2. ORENCIA [Suspect]
     Active Substance: ABATACEPT
     Dosage: ORENCIA-STRENGTH: 125MG/ML 4-PFS?DOSE: INJECT 125MG (1 SYRINGE) SUBCUTANEOUSLY ONCE A WEEK.?ROUTE:
     Route: 058

REACTIONS (1)
  - Cough [Unknown]
